FAERS Safety Report 12138038 (Version 1)
Quarter: 2016Q1

REPORT INFORMATION
  Report Type: Spontaneous
  Country: US (occurrence: US)
  Receive Date: 20160302
  Receipt Date: 20160302
  Transmission Date: 20160526
  Serious: Yes (Life-Threatening, Hospitalization, Other)
  Sender: FDA-Public Use
  Company Number: US-BAUSCH-BL-2016-004532

PATIENT
  Age: 16 Year
  Sex: Female

DRUGS (1)
  1. BUPROPION. [Suspect]
     Active Substance: BUPROPION
     Indication: PRODUCT USED FOR UNKNOWN INDICATION
     Route: 048

REACTIONS (8)
  - Cardiomyopathy [Recovered/Resolved]
  - Generalised tonic-clonic seizure [Recovered/Resolved]
  - Status epilepticus [Recovered/Resolved]
  - Pulseless electrical activity [Recovered/Resolved]
  - Cardiogenic shock [Recovered/Resolved]
  - Toxicity to various agents [Unknown]
  - Overdose [Unknown]
  - Leukocytosis [Recovered/Resolved]
